FAERS Safety Report 14450745 (Version 1)
Quarter: 2018Q1

REPORT INFORMATION
  Report Type: Spontaneous
  Country: US (occurrence: US)
  Receive Date: 20180129
  Receipt Date: 20180129
  Transmission Date: 20180509
  Serious: Yes (Hospitalization, Other)
  Sender: FDA-Public Use
  Company Number: US-UCBSA-2018002185

PATIENT
  Age: 68 Year
  Sex: Female

DRUGS (2)
  1. KEPPRA [Suspect]
     Active Substance: LEVETIRACETAM
     Indication: EPILEPSY
     Dosage: UNK
     Dates: start: 201612
  2. VIMPAT [Suspect]
     Active Substance: LACOSAMIDE
     Indication: PRODUCT USED FOR UNKNOWN INDICATION
     Dosage: UNK, 2X/DAY (BID)
     Dates: start: 2017

REACTIONS (9)
  - Seizure [Recovering/Resolving]
  - Small cell lung cancer metastatic [Recovering/Resolving]
  - Brain oedema [Recovering/Resolving]
  - Hallucination [Recovered/Resolved]
  - Anxiety [Recovering/Resolving]
  - Intestinal obstruction [Recovering/Resolving]
  - Amnesia [Recovered/Resolved]
  - Incarcerated hernia [Recovering/Resolving]
  - Blood pressure increased [Recovering/Resolving]

NARRATIVE: CASE EVENT DATE: 201703
